FAERS Safety Report 5338311-8 (Version None)
Quarter: 2007Q2

REPORT INFORMATION
  Report Type: 
  Country: None (occurrence: None)
  Receive Date: 20070405
  Receipt Date: 20061120
  Transmission Date: 20071010
  Serious: No
  Sender: FDA-Public Use
  Company Number: US200611003882

PATIENT
  Age: 54 Year
  Sex: Male

DRUGS (2)
  1. CYMBALTA [Suspect]
     Indication: DEPRESSION
     Dosage: 30 MG 2/D ORAL
     Route: 048
     Dates: start: 20060901
  2. ASTHMAHALER (EPINEPHRINE BITARTRATE) [Concomitant]

REACTIONS (2)
  - HOMELESS [None]
  - LOSS OF EMPLOYMENT [None]
